FAERS Safety Report 12387621 (Version 1)
Quarter: 2016Q2

REPORT INFORMATION
  Report Type: Spontaneous
  Country: NL (occurrence: NL)
  Receive Date: 20160520
  Receipt Date: 20160520
  Transmission Date: 20160815
  Serious: Yes (Hospitalization)
  Sender: FDA-Public Use
  Company Number: NL-ROCHE-1760180

PATIENT
  Age: 68 Year
  Sex: Female

DRUGS (15)
  1. PREDNISOLON [Concomitant]
     Active Substance: PREDNISOLONE
     Dosage: , PREDNISOLON CAPSULE 30MG
     Route: 048
  2. CEFTRIAXONE. [Suspect]
     Active Substance: CEFTRIAXONE
     Indication: BRAIN ABSCESS
     Route: 042
     Dates: start: 20160317, end: 20160413
  3. LEVETIRACETAM. [Concomitant]
     Active Substance: LEVETIRACETAM
     Dosage: FILM-COATED TABLET
     Route: 048
  4. OXYCODON [Concomitant]
     Active Substance: OXYCODONE
     Dosage: AS REQUIRED, ORODISPERSIBLE TABLET, SMELT TABLET
     Route: 048
  5. GLICLAZIDE [Concomitant]
     Active Substance: GLICLAZIDE
     Dosage: GLICLAZIDE TABLET MGA 80MG, PROLONGED RELEASE TABLET
     Route: 048
  6. INSULINE [Concomitant]
     Active Substance: INSULIN NOS
     Dosage: 100E/ML
     Route: 058
  7. PARACETAMOL [Concomitant]
     Active Substance: ACETAMINOPHEN
     Dosage: PARACETAMOL TABLET  500MG
     Route: 048
  8. OXAZEPAM. [Concomitant]
     Active Substance: OXAZEPAM
     Dosage: OXAZEPAM TABLET 10MG
     Route: 048
  9. NADROPARINE [Concomitant]
     Active Substance: NADROPARIN
     Dosage: , NADROPARINE INJVLST  9500IE/ML
     Route: 058
  10. METRONIDAZOL [Concomitant]
     Active Substance: METRONIDAZOLE
     Dosage: 500MG, METRONIDAZOL INFVLST 5MG/ML
     Route: 042
  11. MAGNESIUM HYDROXIDE. [Concomitant]
     Active Substance: MAGNESIUM HYDROXIDE
     Dosage: MAGNESIUM HYDROXIDE TABLET 724MG
     Route: 048
  12. MEROPENEM. [Concomitant]
     Active Substance: MEROPENEM
     Dosage: , POWDER FOR SOLUTION FOR INJECTION OR INFUSION
     Route: 042
  13. MICONAZOL [Concomitant]
     Active Substance: MICONAZOLE NITRATE
     Dosage: 20MG/G
     Route: 003
  14. NIFEDIPINE. [Concomitant]
     Active Substance: NIFEDIPINE
     Dosage: PROLONGED RELEASE TABLET
     Route: 048
  15. LACTULOSE. [Concomitant]
     Active Substance: LACTULOSE
     Dosage: LACTULOSE STROOP 670MG/ML (500MG/G)
     Route: 048

REACTIONS (3)
  - Haemolytic anaemia [Recovered/Resolved]
  - Bone marrow failure [Recovered/Resolved]
  - Renal impairment [Recovered/Resolved]

NARRATIVE: CASE EVENT DATE: 20160318
